FAERS Safety Report 11643911 (Version 2)
Quarter: 2015Q4

REPORT INFORMATION
  Report Type: Spontaneous
  Country: US (occurrence: US)
  Receive Date: 20151020
  Receipt Date: 20151021
  Transmission Date: 20160304
  Serious: Yes (Other)
  Sender: FDA-Public Use
  Company Number: US-HORIZON-RAV-0092-2015

PATIENT
  Age: 10 Year
  Sex: Female

DRUGS (6)
  1. RESPIDONE [Concomitant]
  2. ARGININE [Concomitant]
     Active Substance: ARGININE
  3. FLUTICASONE NASAL SPRAY [Concomitant]
     Active Substance: FLUTICASONE\FLUTICASONE PROPIONATE
  4. RAVICTI [Suspect]
     Active Substance: GLYCEROL PHENYLBUTYRATE
     Indication: UREA CYCLE ENZYME DEFICIENCY
     Dosage: 3 ML THREE TIMES PER DAY (1.1 GM/ML)
     Dates: start: 201311
  5. ESCITALOPRAM [Concomitant]
     Active Substance: ESCITALOPRAM OXALATE
     Dosage: 10 MG DAILY
  6. DAYTRANA [Concomitant]
     Active Substance: METHYLPHENIDATE

REACTIONS (3)
  - Anger [Unknown]
  - Abnormal behaviour [Unknown]
  - Hallucination, auditory [Unknown]
